FAERS Safety Report 6526126-4 (Version None)
Quarter: 2010Q1

REPORT INFORMATION
  Report Type: 
  Country: None (occurrence: None)
  Receive Date: 20100104
  Receipt Date: 20091229
  Transmission Date: 20100710
  Serious: Yes (Other)
  Sender: FDA-Public Use
  Company Number: US-AMGEN-KDL383053

PATIENT
  Sex: Female
  Weight: 81.7 kg

DRUGS (17)
  1. PROCRIT [Suspect]
     Indication: RENAL FAILURE CHRONIC
  2. LANTUS [Concomitant]
  3. METHYLDOPA [Concomitant]
  4. LIPITOR [Concomitant]
  5. SYNTHROID [Concomitant]
  6. IRON [Concomitant]
  7. CLARITIN [Concomitant]
  8. PREVACID [Concomitant]
  9. CALCIUM [Concomitant]
  10. ATIVAN [Concomitant]
  11. BENICAR [Concomitant]
  12. ATENOLOL [Concomitant]
  13. FUROSEMIDE [Concomitant]
  14. ALISKIREN [Concomitant]
  15. WARFARIN [Concomitant]
  16. VITAMIN B-12 [Concomitant]
  17. SODIUM POLYSTYRENE SULFONATE [Concomitant]

REACTIONS (2)
  - HIP FRACTURE [None]
  - HYPERTENSION [None]
